FAERS Safety Report 24847639 (Version 1)
Quarter: 2025Q1

REPORT INFORMATION
  Report Type: Spontaneous
  Country: US (occurrence: US)
  Receive Date: 20250116
  Receipt Date: 20250116
  Transmission Date: 20250409
  Serious: Yes (Life-Threatening, Hospitalization, Other)
  Sender: Steriscience PTE
  Company Number: US-STERISCIENCE B.V.-2025-ST-000024

PATIENT
  Age: 3 Month
  Sex: Male

DRUGS (4)
  1. AMPICILLIN [Suspect]
     Active Substance: AMPICILLIN
     Indication: Sepsis neonatal
     Route: 065
  2. GENTAMICIN [Suspect]
     Active Substance: GENTAMICIN
     Indication: Sepsis neonatal
     Route: 065
  3. CEFEPIME [Suspect]
     Active Substance: CEFEPIME HYDROCHLORIDE
     Indication: Meningitis Escherichia
     Route: 065
  4. CEFEPIME [Suspect]
     Active Substance: CEFEPIME HYDROCHLORIDE
     Indication: Prophylaxis

REACTIONS (8)
  - Septic shock [None]
  - Escherichia bacteraemia [None]
  - Neonatal seizure [Unknown]
  - Intraventricular haemorrhage neonatal [Unknown]
  - Neonatal respiratory failure [Unknown]
  - Meningitis neonatal [None]
  - CNS ventriculitis [None]
  - Drug resistance [Unknown]
